FAERS Safety Report 7594744-0 (Version None)
Quarter: 2011Q3

REPORT INFORMATION
  Report Type: 
  Country: None (occurrence: None)
  Receive Date: 20110707
  Receipt Date: 20110707
  Transmission Date: 20111222
  Serious: Yes (Hospitalization)
  Sender: FDA-Public Use
  Company Number: TW-ROXANE LABORATORIES, INC.-2011-DE-03694GD

PATIENT
  Age: 74 Year
  Sex: Female

DRUGS (5)
  1. SERTRALINE HYDROCHLORIDE [Suspect]
     Indication: MAJOR DEPRESSION
     Dosage: 50 MG
  2. METOPROLOL TARTRATE [Concomitant]
     Dosage: 25 MG
  3. VALSARTAN [Concomitant]
     Dosage: 160 MG
  4. ISOSORBIDE [Concomitant]
     Dosage: 40 MG
  5. INSULIN [Concomitant]
     Indication: DIABETES MELLITUS
     Route: 058

REACTIONS (1)
  - MANIA [None]
